FAERS Safety Report 11786334 (Version 3)
Quarter: 2015Q4

REPORT INFORMATION
  Report Type: Spontaneous
  Country: US (occurrence: US)
  Receive Date: 20151130
  Receipt Date: 20151228
  Transmission Date: 20160305
  Serious: Yes (Hospitalization, Other)
  Sender: FDA-Public Use
  Company Number: US-SMITH AND NEPHEW, INC-2015SMT00547

PATIENT
  Age: 68 Year
  Sex: Male
  Weight: 159.64 kg

DRUGS (2)
  1. REGRANEX [Suspect]
     Active Substance: BECAPLERMIN
     Indication: WOUND
     Dosage: 1 DOSAGE UNITS, 1X/DAY
     Route: 061
     Dates: start: 201511
  2. UNSPECIFIED MEDICATION(S) [Concomitant]

REACTIONS (11)
  - Hypoxia [Unknown]
  - Obesity [Unknown]
  - Sleep apnoea syndrome [Unknown]
  - Diastolic dysfunction [Unknown]
  - Pneumonia bacterial [Recovered/Resolved]
  - Asthenia [Unknown]
  - Cough [Not Recovered/Not Resolved]
  - Encephalopathy [Unknown]
  - Cardiac failure congestive [Unknown]
  - Mental status changes [Unknown]
  - Fall [Recovered/Resolved]

NARRATIVE: CASE EVENT DATE: 2015
